FAERS Safety Report 17251684 (Version 1)
Quarter: 2020Q1

REPORT INFORMATION
  Report Type: Spontaneous
  Country: US (occurrence: US)
  Receive Date: 20200108
  Receipt Date: 20200108
  Transmission Date: 20200409
  Serious: Yes (Death)
  Sender: FDA-Public Use
  Company Number: None

PATIENT
  Sex: Female

DRUGS (6)
  1. CAPECITABINE. [Suspect]
     Active Substance: CAPECITABINE
     Indication: BREAST CANCER FEMALE
     Route: 048
     Dates: start: 20190806
  2. FASLODEX [Concomitant]
     Active Substance: FULVESTRANT
  3. PEPCID [Concomitant]
     Active Substance: FAMOTIDINE
  4. RANITIDINE. [Concomitant]
     Active Substance: RANITIDINE
  5. SYNTHROID [Concomitant]
     Active Substance: LEVOTHYROXINE SODIUM
  6. STOOL SOFTNR [Concomitant]

REACTIONS (1)
  - Death [None]
